FAERS Safety Report 5359406-9 (Version None)
Quarter: 2007Q2

REPORT INFORMATION
  Report Type: 
  Country: None (occurrence: None)
  Receive Date: 20070615
  Receipt Date: 20070606
  Transmission Date: 20071010
  Serious: Yes (Other)
  Sender: FDA-Public Use
  Company Number: US-ABBOTT-07P-163-0371490-00

PATIENT
  Sex: Male

DRUGS (15)
  1. HUMIRA [Suspect]
     Indication: RHEUMATOID ARTHRITIS
     Route: 058
     Dates: start: 20040101
  2. HUMIRA [Suspect]
     Dosage: PEN
     Route: 058
  3. CLOPIDOGREL [Concomitant]
     Indication: CORONARY ARTERY DISEASE
     Route: 048
  4. ATENOLOL [Concomitant]
     Indication: HYPERTENSION
     Route: 048
  5. CADUET [Concomitant]
     Indication: CORONARY ARTERY DISEASE
     Route: 048
  6. CELECOXIB [Concomitant]
     Indication: PAIN
     Route: 048
  7. PREDNISONE TAB [Concomitant]
     Indication: DRUG USE FOR UNKNOWN INDICATION
     Route: 048
  8. ESOMEPRAZOLE MAGNESIUM [Concomitant]
     Indication: ANTACID THERAPY
     Route: 048
  9. SALBUTAMOL [Concomitant]
     Indication: DYSPNOEA
     Route: 055
  10. VITAMIN E [Concomitant]
     Indication: VITAMIN SUPPLEMENTATION
     Route: 048
  11. VITAMIN B [Concomitant]
     Indication: VITAMIN SUPPLEMENTATION
     Route: 048
  12. YEAST DRIED [Concomitant]
     Indication: PROPHYLAXIS
     Route: 048
  13. YEAST DRIED [Concomitant]
     Indication: PROSTATITIS
  14. AMBERTOSE [Concomitant]
     Indication: IMMUNE ENHANCEMENT THERAPY
  15. EYE DROP [Concomitant]
     Indication: DRY EYE
     Route: 047

REACTIONS (6)
  - ARRHYTHMIA [None]
  - CATHETERISATION CARDIAC [None]
  - ELECTRIC SHOCK [None]
  - INJECTION SITE HAEMORRHAGE [None]
  - INJECTION SITE PAIN [None]
  - STENT PLACEMENT [None]
